FAERS Safety Report 5147776-6 (Version None)
Quarter: 2006Q4

REPORT INFORMATION
  Report Type: 
  Country: None (occurrence: None)
  Receive Date: 20061106
  Receipt Date: 20061025
  Transmission Date: 20070319
  Serious: Yes (Other)
  Sender: FDA-Public Use
  Company Number: GXKR2006BR06768

PATIENT
  Age: 93 Year
  Sex: Male
  Weight: 70 kg

DRUGS (4)
  1. AMOXICILLIN + CLAVULANATE POTASSIUM (NGX) [Suspect]
     Dosage: 500 /125 MG, ORAL
     Route: 048
  2. EBIXA (MEMANTINE HYDROCHLORIDE) [Concomitant]
  3. HYDROCHLOROTHIAZIDE [Concomitant]
  4. VENORUTON (TROXERUTIN) [Concomitant]

REACTIONS (3)
  - CONCOMITANT DISEASE AGGRAVATED [None]
  - DERMATITIS ALLERGIC [None]
  - HAEMATOCHEZIA [None]
